FAERS Safety Report 4738077-6 (Version None)
Quarter: 2005Q3

REPORT INFORMATION
  Report Type: 
  Country: None (occurrence: None)
  Receive Date: 20050805
  Receipt Date: 20050805
  Transmission Date: 20060218
  Serious: Yes (Other)
  Sender: FDA-Public Use
  Company Number: None

PATIENT
  Age: 66 Year
  Sex: Male
  Weight: 87.1 kg

DRUGS (13)
  1. EZETIMIBE [Suspect]
  2. LISINOPRIL [Concomitant]
  3. METFORMIN HCL [Concomitant]
  4. HUMULIN R [Concomitant]
  5. NOVOLIN R [Concomitant]
  6. OMEPRAZOLE [Concomitant]
  7. HUMULIN N [Concomitant]
  8. NOVOLIN N [Concomitant]
  9. ATENOLOL [Concomitant]
  10. EZETIMIBE [Concomitant]
  11. TAMSULOSIN HCL [Concomitant]
  12. PSYLLIUM [Concomitant]
  13. CAPSAICIN [Concomitant]

REACTIONS (1)
  - MYALGIA [None]
